FAERS Safety Report 4468012-X (Version None)
Quarter: 2004Q4

REPORT INFORMATION
  Report Type: 
  Country: None (occurrence: None)
  Receive Date: 20041007
  Receipt Date: 20040922
  Transmission Date: 20050328
  Serious: Yes (Hospitalization)
  Sender: FDA-Public Use
  Company Number: 200413542FR

PATIENT
  Age: 83 Year
  Sex: Male

DRUGS (6)
  1. LASILIX 40 MG [Suspect]
     Route: 048
     Dates: end: 20040610
  2. TERCIAN [Suspect]
     Route: 048
     Dates: start: 20040609, end: 20040610
  3. ARICEPT [Concomitant]
     Dosage: DOSE UNIT: UNITS
     Route: 048
  4. HEMIGOXINE NATIVELLE [Concomitant]
     Route: 048
  5. CORDARONE [Concomitant]
     Route: 048
  6. KARDEGIC 160 MG [Concomitant]
     Route: 048

REACTIONS (6)
  - COMA [None]
  - FALL [None]
  - HYPONATRAEMIA [None]
  - OVERDOSE [None]
  - RENAL FAILURE [None]
  - SOMNOLENCE [None]
